FAERS Safety Report 18723931 (Version 3)
Quarter: 2021Q2

REPORT INFORMATION
  Report Type: Other
  Country: DE (occurrence: DE)
  Receive Date: 20210111
  Receipt Date: 20210423
  Transmission Date: 20210717
  Serious: No
  Sender: FDA-Public Use
  Company Number: DE-ROCHE-2464164

PATIENT
  Age: 40 Year
  Sex: Female

DRUGS (10)
  1. VIGANTOLETTEN [Concomitant]
     Active Substance: CHOLECALCIFEROL
  2. OCREVUS [Suspect]
     Active Substance: OCRELIZUMAB
     Route: 042
     Dates: start: 20210202
  3. AZITHROMYCIN ANHYDROUS. [Suspect]
     Active Substance: AZITHROMYCIN ANHYDROUS
     Indication: PYREXIA
  4. FEANOLLA [Suspect]
     Active Substance: DESOGESTREL
     Indication: CONTRACEPTION
     Route: 065
     Dates: start: 20191115
  5. OCREVUS [Suspect]
     Active Substance: OCRELIZUMAB
     Indication: RELAPSING-REMITTING MULTIPLE SCLEROSIS
     Route: 042
     Dates: start: 20200625
  6. OCREVUS [Suspect]
     Active Substance: OCRELIZUMAB
     Route: 042
     Dates: start: 20190905
  7. URO?TABLINEN [Concomitant]
     Active Substance: NITROFURANTOIN
  8. OCREVUS [Suspect]
     Active Substance: OCRELIZUMAB
     Indication: MULTIPLE SCLEROSIS
     Route: 042
     Dates: start: 20190822, end: 20190905
  9. AZITHROMYCIN ANHYDROUS. [Suspect]
     Active Substance: AZITHROMYCIN ANHYDROUS
     Indication: INFLUENZA LIKE ILLNESS
     Route: 065
     Dates: start: 20200120
  10. MICTONORM UNO [Concomitant]

REACTIONS (15)
  - Body temperature increased [Recovered/Resolved]
  - Hypotension [Unknown]
  - Pyrexia [Recovered/Resolved]
  - SARS-CoV-2 antibody test positive [Recovered/Resolved]
  - Diarrhoea [Recovered/Resolved]
  - Fatigue [Recovered/Resolved]
  - Laryngitis [Recovering/Resolving]
  - Fluid retention [Recovered/Resolved]
  - Intermenstrual bleeding [Recovered/Resolved]
  - Influenza like illness [Recovered/Resolved]
  - Nasopharyngitis [Recovered/Resolved]
  - Muscle spasticity [Recovered/Resolved]
  - COVID-19 [Recovered/Resolved]
  - Asthenia [Recovered/Resolved]
  - Wheelchair user [Unknown]

NARRATIVE: CASE EVENT DATE: 20190822
